FAERS Safety Report 8079113-1 (Version None)
Quarter: 2012Q1

REPORT INFORMATION
  Report Type: 
  Country: None (occurrence: None)
  Receive Date: 20120128
  Receipt Date: 20110823
  Transmission Date: 20120608
  Serious: No
  Sender: FDA-Public Use
  Company Number: US-ABBOTT-11P-163-0847772-00

PATIENT
  Sex: Female
  Weight: 65.83 kg

DRUGS (13)
  1. PREDNISONE TAB [Concomitant]
     Indication: RHEUMATOID ARTHRITIS
  2. LIPITOR [Concomitant]
     Indication: BLOOD CHOLESTEROL INCREASED
  3. METHOTREXATE [Concomitant]
     Indication: RHEUMATOID ARTHRITIS
  4. FOLIC ACID [Concomitant]
     Indication: VITAMIN SUPPLEMENTATION
  5. CALTRATE [Concomitant]
     Indication: PRODUCT USED FOR UNKNOWN INDICATION
  6. HUMIRA [Suspect]
     Indication: PRODUCT USED FOR UNKNOWN INDICATION
     Dates: start: 20100702
  7. TRAZODONE HCL [Concomitant]
     Indication: INSOMNIA
  8. FLUOXETINE [Concomitant]
     Indication: DEPRESSION
  9. VESICARE [Concomitant]
     Indication: BLADDER DISORDER
  10. XANAX [Concomitant]
     Indication: ANXIETY
  11. SULFAMETH/TNP [Concomitant]
     Indication: BLADDER DISORDER
  12. HUMIRA [Suspect]
  13. NEXIUM [Concomitant]
     Indication: GASTROOESOPHAGEAL REFLUX DISEASE

REACTIONS (5)
  - WOUND INFECTION [None]
  - ERYTHEMA [None]
  - PAIN IN EXTREMITY [None]
  - OEDEMA PERIPHERAL [None]
  - ANIMAL BITE [None]
